FAERS Safety Report 5806996-5 (Version None)
Quarter: 2008Q3

REPORT INFORMATION
  Report Type: 
  Country: None (occurrence: None)
  Receive Date: 20080702
  Receipt Date: 20070521
  Transmission Date: 20090109
  Serious: Yes (Hospitalization)
  Sender: FDA-Public Use
  Company Number: PROG00207032219

PATIENT
  Age: 19 Year
  Sex: Female
  Weight: 61 kg

DRUGS (1)
  1. PROMETRIUM [Suspect]
     Indication: OLIGOMENORRHOEA
     Dosage: DAILY ORAL DAILY DOSE:  100 MG DAILY FOR DAYS 1 THROUGH 12 OF THE MONTH
     Route: 048
     Dates: start: 20061221, end: 20070503

REACTIONS (1)
  - PULMONARY EMBOLISM [None]
